FAERS Safety Report 7106115-1 (Version None)
Quarter: 2010Q4

REPORT INFORMATION
  Report Type: 
  Country: None (occurrence: None)
  Receive Date: 20101116
  Receipt Date: 20101103
  Transmission Date: 20110411
  Serious: Yes (Life-Threatening, Hospitalization)
  Sender: FDA-Public Use
  Company Number: GB-MYLANLABS-2010S1020284

PATIENT
  Age: 78 Year
  Sex: Female

DRUGS (6)
  1. WARFARIN [Suspect]
     Indication: ATRIAL FIBRILLATION
     Route: 048
     Dates: end: 20101019
  2. DIGOXIN [Concomitant]
     Indication: ATRIAL FIBRILLATION
     Route: 048
  3. FUROSEMIDE [Concomitant]
     Indication: HYPERTENSION
     Route: 048
  4. LETROZOLE [Concomitant]
     Indication: BREAST CANCER
     Route: 048
  5. MS CONTIN [Concomitant]
     Indication: PAIN
     Route: 048
  6. ZOTON [Concomitant]
     Indication: PRODUCT USED FOR UNKNOWN INDICATION
     Route: 048

REACTIONS (2)
  - INTERNATIONAL NORMALISED RATIO INCREASED [None]
  - PYREXIA [None]
